FAERS Safety Report 17593222 (Version 3)
Quarter: 2020Q2

REPORT INFORMATION
  Report Type: Spontaneous
  Country: FR (occurrence: FR)
  Receive Date: 20200327
  Receipt Date: 20200601
  Transmission Date: 20200713
  Serious: Yes (Death, Life-Threatening, Hospitalization, Other)
  Sender: FDA-Public Use
  Company Number: FR-MYLANLABS-2020M1032662

PATIENT
  Age: 72 Year
  Sex: Female

DRUGS (8)
  1. PREDNISOLONE. [Suspect]
     Active Substance: PREDNISOLONE
     Indication: PNEUMOCYSTIS JIROVECII PNEUMONIA
     Dosage: HIGH-DOSE PREDNISONE 1 MG/KG EQUIVALENT/DAY
     Route: 065
  2. COTRIMOXAZOLE [Suspect]
     Active Substance: SULFAMETHOXAZOLE\TRIMETHOPRIM
     Indication: PNEUMOCYSTIS JIROVECII PNEUMONIA
     Dosage: HIGH-DOSE/TRIMETHOPRIM 15-20MG/KG/DAY,SULFAMETHOXAZOLE 75-100MG/KG/DAY
  3. PALBOCICLIB [Suspect]
     Active Substance: PALBOCICLIB
     Indication: BREAST CANCER METASTATIC
     Dosage: PALBOCICLIB 125 MG PER DAY
     Route: 048
     Dates: start: 201901, end: 2019
  4. PALBOCICLIB [Suspect]
     Active Substance: PALBOCICLIB
     Dosage: PALBOCICLIB WAS ADJUSTED FROM 125 MG TO 100 MG PER DAY
     Route: 048
     Dates: start: 2019
  5. PREDNISOLONE. [Suspect]
     Active Substance: PREDNISOLONE
     Indication: INTESTINAL OBSTRUCTION
     Dosage: 40 MILLIGRAM, QD,AND REDUCED TO 20MG DAILY
     Route: 065
     Dates: start: 201905, end: 2019
  6. PREDNISOLONE. [Suspect]
     Active Substance: PREDNISOLONE
     Indication: METASTASES TO PERITONEUM
     Dosage: 20 MILLIGRAM, QD
     Dates: start: 2019
  7. PALBOCICLIB [Suspect]
     Active Substance: PALBOCICLIB
     Dosage: ADMINISTERED IN 4-WEEK CYCLES (3 WEEKS ON FOLLOWED BY 1 WEEK OFF)
     Dates: start: 201901
  8. EXEMESTANE. [Suspect]
     Active Substance: EXEMESTANE
     Indication: BREAST CANCER METASTATIC
     Dosage: 25 MG, DAILY
     Route: 065
     Dates: start: 201901

REACTIONS (27)
  - Pneumocystis jirovecii pneumonia [Fatal]
  - Treatment failure [Fatal]
  - Immunodeficiency [Fatal]
  - Epstein-Barr virus infection reactivation [Fatal]
  - Cell-mediated immune deficiency [Fatal]
  - Neutropenia [Unknown]
  - Hypercalcaemia [Unknown]
  - Lymphopenia [Fatal]
  - Bone marrow failure [Fatal]
  - Enterococcal infection [Unknown]
  - Sepsis [Unknown]
  - Herpes simplex [Fatal]
  - Device malfunction [Fatal]
  - Aspergillus infection [Unknown]
  - Epstein-Barr virus infection [Fatal]
  - Cytomegalovirus infection [Fatal]
  - Infection reactivation [Unknown]
  - Anaemia [Unknown]
  - Herpes simplex reactivation [Fatal]
  - Varicella zoster virus infection [Fatal]
  - Parvovirus infection [Fatal]
  - Viral infection [Fatal]
  - Interstitial lung disease [Fatal]
  - Cytomegalovirus infection reactivation [Fatal]
  - Pyelonephritis [Fatal]
  - Leukopenia [Unknown]
  - Klebsiella infection [Unknown]

NARRATIVE: CASE EVENT DATE: 2019
